FAERS Safety Report 4281136-5 (Version None)
Quarter: 2004Q1

REPORT INFORMATION
  Report Type: 
  Country: None (occurrence: None)
  Receive Date: 20040105
  Receipt Date: 20030926
  Transmission Date: 20041129
  Serious: Yes (Hospitalization)
  Sender: FDA-Public Use
  Company Number: SU-2003-001810

PATIENT
  Age: 69 Year
  Sex: Male
  Weight: 99.3377 kg

DRUGS (6)
  1. BENICAR HCT [Suspect]
     Indication: HYPERTENSION
     Dosage: 40.125 MG QD PO
     Route: 048
     Dates: start: 20030819, end: 20030922
  2. NORVASC [Concomitant]
  3. TOPROL-XL [Concomitant]
  4. ASPIRIN [Concomitant]
  5. PLAVIX [Concomitant]
  6. PLACEBO/PLAVIX [Concomitant]

REACTIONS (1)
  - RENAL FAILURE ACUTE [None]
